FAERS Safety Report 10456054 (Version 4)
Quarter: 2014Q4

REPORT INFORMATION
  Report Type: Report from Study
  Country: US (occurrence: US)
  Receive Date: 20140916
  Receipt Date: 20141117
  Transmission Date: 20150528
  Serious: Yes (Hospitalization, Other)
  Sender: FDA-Public Use
  Company Number: US-JNJFOC-20140714397

PATIENT
  Sex: Female

DRUGS (17)
  1. LEXAPRO [Concomitant]
     Active Substance: ESCITALOPRAM OXALATE
     Route: 048
  2. PHENERGAN [Concomitant]
     Active Substance: PROMETHAZINE HYDROCHLORIDE
     Route: 065
  3. PRENACID [Concomitant]
     Route: 065
  4. VIMPAT [Concomitant]
     Active Substance: LACOSAMIDE
     Indication: EPILEPSY
     Route: 048
  5. NAPROFEN [Concomitant]
     Indication: ARTHRALGIA
     Route: 065
  6. SUDAFED (PSEUDOEPHEDRINE HYDROCHLORIDE) [Concomitant]
     Route: 065
  7. VANICREAM [Concomitant]
     Active Substance: TITANIUM DIOXIDE\ZINC OXIDE
     Route: 065
  8. ALLEGRA [Concomitant]
     Active Substance: FEXOFENADINE HYDROCHLORIDE
     Indication: HYPERSENSITIVITY
     Route: 048
  9. HYDROXYZINE [Concomitant]
     Active Substance: HYDROXYZINE\HYDROXYZINE HYDROCHLORIDE
     Indication: PRURITUS
     Route: 065
  10. AZITHROMYCIN [Concomitant]
     Active Substance: AZITHROMYCIN ANHYDROUS
     Route: 065
  11. SUDAFED NOS [Concomitant]
     Route: 065
  12. ASPIRIN. [Concomitant]
     Active Substance: ASPIRIN
     Route: 048
  13. DILANTIN [Concomitant]
     Active Substance: PHENYTOIN
     Route: 065
  14. PRILOSEC [Concomitant]
     Active Substance: OMEPRAZOLE MAGNESIUM
     Route: 065
  15. CIPROFLOXACIN. [Concomitant]
     Active Substance: CIPROFLOXACIN
     Route: 065
  16. STELARA [Suspect]
     Active Substance: USTEKINUMAB
     Indication: PSORIASIS
     Dosage: 8 OR MORE INJECTIONS
     Route: 058
     Dates: start: 2012, end: 201403
  17. BUSPAR [Concomitant]
     Active Substance: BUSPIRONE HYDROCHLORIDE
     Indication: ANXIETY
     Route: 048

REACTIONS (12)
  - Ulcer [Not Recovered/Not Resolved]
  - Weight increased [Unknown]
  - Pneumonia [Not Recovered/Not Resolved]
  - Amenorrhoea [Recovered/Resolved]
  - Tooth discolouration [Unknown]
  - Ear congestion [Unknown]
  - Insomnia [Recovered/Resolved]
  - Contraindication to vaccination [Unknown]
  - Psoriatic arthropathy [Unknown]
  - Dehydration [Unknown]
  - Blindness unilateral [Not Recovered/Not Resolved]
  - Drug ineffective [Unknown]

NARRATIVE: CASE EVENT DATE: 2012
